FAERS Safety Report 8615004-2 (Version None)
Quarter: 2012Q3

REPORT INFORMATION
  Report Type: 
  Country: None (occurrence: None)
  Receive Date: 20120823
  Receipt Date: 20120813
  Transmission Date: 20120928
  Serious: Yes (Other)
  Sender: FDA-Public Use
  Company Number: US-RB-043606-12

PATIENT
  Sex: Male

DRUGS (1)
  1. MUCINEX [Suspect]
     Indication: PRODUCT USED FOR UNKNOWN INDICATION
     Dosage: 2 TIMES A DAY
     Route: 045
     Dates: start: 20120810

REACTIONS (2)
  - BURNING SENSATION [None]
  - EPISTAXIS [None]
